FAERS Safety Report 20895906 (Version 1)
Quarter: 2022Q2

REPORT INFORMATION
  Report Type: Spontaneous
  Country: CN (occurrence: CN)
  Receive Date: 20220531
  Receipt Date: 20220531
  Transmission Date: 20220721
  Serious: Yes (Hospitalization, Other)
  Sender: FDA-Public Use
  Company Number: CN-GLAXOSMITHKLINE-CN2022APC082242

PATIENT
  Sex: Female

DRUGS (8)
  1. AMBRISENTAN [Suspect]
     Active Substance: AMBRISENTAN
     Indication: Pulmonary arterial hypertension
     Dosage: UNK UNK, QD
     Route: 048
     Dates: start: 20210907, end: 20220412
  2. AMBRISENTAN [Suspect]
     Active Substance: AMBRISENTAN
     Dosage: 5 MG, QD
     Route: 048
     Dates: start: 20210907
  3. REVATIO [Suspect]
     Active Substance: SILDENAFIL CITRATE
     Indication: Product used for unknown indication
     Dosage: 20 MG, TID
     Route: 065
     Dates: start: 20220412
  4. AMINOPHENAZONE [Concomitant]
     Active Substance: AMINOPHENAZONE
     Indication: Pyrexia
     Dosage: 0.15 G, SINGLE
     Route: 048
     Dates: start: 20220413
  5. AMINOPHENAZONE [Concomitant]
     Active Substance: AMINOPHENAZONE
     Dosage: 0.15 G, SINGLE
     Route: 048
     Dates: start: 20220417
  6. CAFFEINE [Concomitant]
     Active Substance: CAFFEINE
     Indication: Pyrexia
     Dosage: 40 MG, SINGLE
     Route: 048
     Dates: start: 20220413
  7. CAFFEINE [Concomitant]
     Active Substance: CAFFEINE
     Dosage: 40 MG, SINGLE
     Route: 048
     Dates: start: 20220417
  8. AMMONIUM CHLORIDE ORAL SOLUTION [Concomitant]
     Indication: Product used for unknown indication
     Dosage: 10 ML, TID
     Route: 048

REACTIONS (5)
  - Pyrexia [Recovered/Resolved]
  - Right ventricular failure [Recovered/Resolved]
  - N-terminal prohormone brain natriuretic peptide increased [Recovered/Resolved]
  - Chest discomfort [Recovered/Resolved]
  - Performance status decreased [Recovered/Resolved]

NARRATIVE: CASE EVENT DATE: 20220413
